FAERS Safety Report 4802840-3 (Version None)
Quarter: 2005Q4

REPORT INFORMATION
  Report Type: 
  Country: None (occurrence: None)
  Receive Date: 20051013
  Receipt Date: 20051003
  Transmission Date: 20060501
  Serious: Yes (Other)
  Sender: FDA-Public Use
  Company Number: 1515-111

PATIENT
  Age: 61 Year
  Sex: Female

DRUGS (5)
  1. VENOFER [Suspect]
     Indication: IRON DEFICIENCY ANAEMIA
     Dosage: 200 MG/200 ML NS OVER 90 MINUTES
     Dates: start: 20050920
  2. ARIXTRA [Concomitant]
  3. TRAMADOL HCL [Concomitant]
  4. NEXIUM [Concomitant]
  5. TRAMADOL HCL [Concomitant]

REACTIONS (3)
  - NAUSEA [None]
  - TACHYCARDIA [None]
  - VOMITING [None]
